FAERS Safety Report 25239485 (Version 1)
Quarter: 2025Q2

REPORT INFORMATION
  Report Type: Spontaneous
  Country: US (occurrence: None)
  Receive Date: 20250424
  Receipt Date: 20250424
  Transmission Date: 20250717
  Serious: Yes (Other)
  Sender: FDA-CTU
  Company Number: None

PATIENT
  Age: 49 Year
  Sex: Male

DRUGS (1)
  1. KESIMPTA [Suspect]
     Active Substance: OFATUMUMAB
     Route: 058
     Dates: start: 20250123

REACTIONS (5)
  - Injection site papule [None]
  - Injection site reaction [None]
  - Multiple sclerosis relapse [None]
  - Influenza like illness [None]
  - Product administered at inappropriate site [None]

NARRATIVE: CASE EVENT DATE: 20250423
